FAERS Safety Report 8978466 (Version 1)
Quarter: 2012Q4

REPORT INFORMATION
  Report Type: 
  Country: US (occurrence: US)
  Receive Date: 20121221
  Receipt Date: 20121221
  Transmission Date: 20130627
  Serious: No
  Sender: FDA-Public Use
  Company Number: US-JNJFOC-20121207457

PATIENT
  Age: 58 Year
  Sex: Female
  Weight: 90.72 kg

DRUGS (1)
  1. SANDOZ FENTANYL TRANSDERMAL SYSTEM [Suspect]
     Indication: INTERVERTEBRAL DISC PROTRUSION
     Route: 062

REACTIONS (4)
  - Wrong technique in drug usage process [Recovered/Resolved]
  - Poor quality drug administered [Not Recovered/Not Resolved]
  - Product quality issue [Unknown]
  - Product quality issue [Unknown]
